FAERS Safety Report 17901244 (Version 2)
Quarter: 2021Q2

REPORT INFORMATION
  Report Type: Spontaneous
  Country: US (occurrence: US)
  Receive Date: 20200616
  Receipt Date: 20210629
  Transmission Date: 20210717
  Serious: No
  Sender: FDA-Public Use
  Company Number: US-TEVA-2020-US-1248316

PATIENT

DRUGS (1)
  1. IVERMECTIN TEVA [Suspect]
     Active Substance: IVERMECTIN
     Route: 061

REACTIONS (4)
  - Burning sensation [Unknown]
  - Product formulation issue [Unknown]
  - Product substitution issue [Unknown]
  - Condition aggravated [Unknown]
